FAERS Safety Report 7028487-9 (Version None)
Quarter: 2010Q4

REPORT INFORMATION
  Report Type: 
  Country: None (occurrence: None)
  Receive Date: 20101005
  Receipt Date: 20100929
  Transmission Date: 20110411
  Serious: Yes (Other)
  Sender: FDA-Public Use
  Company Number: JP-PFIZER INC-2010124178

PATIENT
  Age: 67 Year
  Sex: Female

DRUGS (1)
  1. SEIBULE [Suspect]
     Dosage: 150MG, UNK
     Route: 048
     Dates: start: 20100427, end: 20100529

REACTIONS (1)
  - FACE OEDEMA [None]
